FAERS Safety Report 15764491 (Version 1)
Quarter: 2018Q4

REPORT INFORMATION
  Report Type: Other
  Country: FR (occurrence: FR)
  Receive Date: 20181227
  Receipt Date: 20181227
  Transmission Date: 20190205
  Serious: Yes (Life-Threatening, Other)
  Sender: FDA-Public Use
  Company Number: FR-ACCORD-096489

PATIENT
  Age: 63 Year
  Sex: Female
  Weight: 71 kg

DRUGS (5)
  1. CARBOPLATIN. [Concomitant]
     Active Substance: CARBOPLATIN
     Route: 042
  2. BEVACIZUMAB. [Concomitant]
     Active Substance: BEVACIZUMAB
  3. CISPLATIN. [Suspect]
     Active Substance: CISPLATIN
     Indication: OVARIAN CANCER
     Dosage: OF BODY SURFACE IN 150 ML OF NACL?0.9%
     Route: 042
  4. PACLITAXEL/PACLITAXEL LIPOSOME [Concomitant]
  5. DOXORUBICIN [Suspect]
     Active Substance: DOXORUBICIN
     Indication: OVARIAN CANCER
     Dosage: OF BODY SURFACE IN 50 ML OF NACL 0.9%

REACTIONS (2)
  - Anaphylactic reaction [Recovered/Resolved]
  - Parotitis [Unknown]
